FAERS Safety Report 5858811-1 (Version None)
Quarter: 2008Q3

REPORT INFORMATION
  Report Type: 
  Country: None (occurrence: None)
  Receive Date: 20080826
  Receipt Date: 20080819
  Transmission Date: 20090109
  Serious: Yes (Other)
  Sender: FDA-Public Use
  Company Number: RU-GILEAD-2008-0017832

PATIENT
  Sex: Female
  Weight: 54.2 kg

DRUGS (5)
  1. AMBRISENTAN [Suspect]
     Indication: PULMONARY ARTERIAL HYPERTENSION
     Dates: start: 20070913, end: 20080818
  2. METYPRED [Concomitant]
     Indication: MIXED CONNECTIVE TISSUE DISEASE
     Dates: start: 20050224
  3. DILTIAZEM HCL [Concomitant]
     Dates: start: 20051017
  4. PLAQUENIL [Concomitant]
     Dates: start: 20020101
  5. CAL D3 [Concomitant]
     Dates: start: 20020101

REACTIONS (1)
  - PREGNANCY [None]
